FAERS Safety Report 5099426-5 (Version None)
Quarter: 2006Q3

REPORT INFORMATION
  Report Type: 
  Country: None (occurrence: None)
  Receive Date: 20060905
  Receipt Date: 20060905
  Transmission Date: 20061208
  Serious: Yes (Other)
  Sender: FDA-Public Use
  Company Number: None

PATIENT
  Age: 32 Year
  Sex: Female

DRUGS (1)
  1. TUBERCULIN PPD DILUTED /APLISOL PARKEDALE PHARMACEUTICALS INC [Suspect]
     Dosage: INTRADERMAL, LFA
     Route: 023
     Dates: start: 20060809

REACTIONS (2)
  - CHEST DISCOMFORT [None]
  - HYPOAESTHESIA [None]
